FAERS Safety Report 18541387 (Version 1)
Quarter: 2020Q4

REPORT INFORMATION
  Report Type: Spontaneous
  Country: GB (occurrence: GB)
  Receive Date: 20201124
  Receipt Date: 20201124
  Transmission Date: 20210114
  Serious: Yes (Death, Life-Threatening, Hospitalization)
  Sender: FDA-Public Use
  Company Number: GB-DSJP-DSE-2020-135763

PATIENT
  Age: 78 Year
  Sex: Male

DRUGS (1)
  1. LIXIANA [Suspect]
     Active Substance: EDOXABAN TOSYLATE
     Indication: ATRIAL FIBRILLATION
     Dosage: 60 MG, QD

REACTIONS (2)
  - Pneumonia aspiration [Fatal]
  - Small intestinal obstruction [Fatal]

NARRATIVE: CASE EVENT DATE: 20201109
